FAERS Safety Report 8766345 (Version 2)
Quarter: 2013Q4

REPORT INFORMATION
  Report Type: Spontaneous
  Country: US (occurrence: US)
  Receive Date: 20120904
  Receipt Date: 20131105
  Transmission Date: 20140711
  Serious: Yes (Hospitalization, Other)
  Sender: FDA-Public Use
  Company Number: US-009507513-1208USA009759

PATIENT
  Sex: Female

DRUGS (3)
  1. VICTRELIS [Suspect]
     Indication: HEPATITIS C
     Dosage: 800 MG, TID
     Route: 048
     Dates: start: 20120712
  2. REBETOL [Suspect]
     Dosage: UNK
  3. PEGASYS [Suspect]
     Dosage: UNK

REACTIONS (1)
  - Pancreatitis acute [Not Recovered/Not Resolved]
